FAERS Safety Report 4268559-5 (Version None)
Quarter: 2004Q1

REPORT INFORMATION
  Report Type: 
  Country: None (occurrence: None)
  Receive Date: 20040108
  Receipt Date: 20031229
  Transmission Date: 20041129
  Serious: Yes (Other)
  Sender: FDA-Public Use
  Company Number: US-JNJFOC-20030906187

PATIENT
  Age: 75 Year
  Sex: Female
  Weight: 76.6579 kg

DRUGS (2)
  1. REMICADE [Suspect]
     Indication: COLITIS ULCERATIVE
     Dosage: 500 MG, 1 IN 8 WEEK, INTRAVENOUS
     Route: 042
     Dates: start: 20011201
  2. LOMOTIL (UNSPECIFIED) DIPHENNOXYLATE W/ATROPINE [Concomitant]

REACTIONS (3)
  - BREAST NEOPLASM [None]
  - OESTROGEN RECEPTOR ASSAY POSITIVE [None]
  - PROGESTERONE RECEPTOR ASSAY POSITIVE [None]
